FAERS Safety Report 12418679 (Version 1)
Quarter: 2016Q2

REPORT INFORMATION
  Report Type: Spontaneous
  Country: US (occurrence: US)
  Receive Date: 20160531
  Receipt Date: 20160531
  Transmission Date: 20160815
  Serious: No
  Sender: FDA-Public Use
  Company Number: US-ELI_LILLY_AND_COMPANY-US201605004801

PATIENT
  Sex: Male

DRUGS (2)
  1. CLARITYNE D                        /01202601/ [Concomitant]
     Indication: NASAL CONGESTION
  2. CIALIS [Suspect]
     Active Substance: TADALAFIL
     Indication: ERECTILE DYSFUNCTION
     Dosage: 10 MG, PRN
     Route: 065

REACTIONS (3)
  - Inspiratory capacity decreased [Unknown]
  - Wrong technique in product usage process [Unknown]
  - Nasal congestion [Unknown]
